FAERS Safety Report 19393163 (Version 1)
Quarter: 2021Q2

REPORT INFORMATION
  Report Type: Spontaneous
  Country: US (occurrence: US)
  Receive Date: 20210609
  Receipt Date: 20210609
  Transmission Date: 20210717
  Serious: Yes (Other)
  Sender: FDA-Public Use
  Company Number: US-ASTRAZENECA-2021A494553

PATIENT
  Sex: Male

DRUGS (2)
  1. FARXIGA [Suspect]
     Active Substance: DAPAGLIFLOZIN PROPANEDIOL
     Indication: TYPE 2 DIABETES MELLITUS
     Dosage: DOSE UNKNOWN
     Route: 048
  2. TRADJENTA [Concomitant]
     Active Substance: LINAGLIPTIN

REACTIONS (11)
  - General physical condition abnormal [Unknown]
  - Glycosylated haemoglobin decreased [Unknown]
  - Dehydration [Unknown]
  - Blood creatine decreased [Unknown]
  - Renal disorder [Unknown]
  - Rapid eye movements sleep abnormal [Unknown]
  - Migraine [Unknown]
  - Ill-defined disorder [Unknown]
  - Renal failure [Unknown]
  - Neck injury [Unknown]
  - Dysuria [Unknown]
